FAERS Safety Report 23082307 (Version 1)
Quarter: 2023Q4

REPORT INFORMATION
  Report Type: Report from Study
  Country: US (occurrence: US)
  Receive Date: 20231019
  Receipt Date: 20231019
  Transmission Date: 20240110
  Serious: Yes (Other)
  Sender: FDA-Public Use
  Company Number: US-ABBVIE-5453580

PATIENT
  Sex: Male

DRUGS (1)
  1. IMBRUVICA [Suspect]
     Active Substance: IBRUTINIB
     Indication: Diffuse large B-cell lymphoma
     Dosage: END DATE- 2023
     Route: 048
     Dates: start: 202307

REACTIONS (3)
  - Bedridden [Unknown]
  - General physical health deterioration [Unknown]
  - Speech disorder [Unknown]

NARRATIVE: CASE EVENT DATE: 20230101
